FAERS Safety Report 9563513 (Version 1)
Quarter: 2013Q3

REPORT INFORMATION
  Report Type: Spontaneous
  Country: US (occurrence: None)
  Receive Date: 20130926
  Receipt Date: 20130926
  Transmission Date: 20140515
  Serious: Yes (Hospitalization)
  Sender: FDA-Public Use
  Company Number: None

PATIENT
  Age: 78 Year
  Sex: Female
  Weight: 71.7 kg

DRUGS (12)
  1. SIMVASTATIN [Suspect]
     Indication: HYPERLIPIDAEMIA
     Route: 048
  2. GUAFENESIN [Concomitant]
  3. AMLODIPINE [Concomitant]
  4. WARFARIN [Concomitant]
  5. FERROUS SULFATE [Concomitant]
  6. FUROSEMIDE [Concomitant]
  7. LANSOPRAZOLE [Concomitant]
  8. LOSARTAN [Concomitant]
  9. METOPROLOL [Concomitant]
  10. POTASSIUM CHLORIDE [Concomitant]
  11. DIPHENHYDRAMINE [Concomitant]
  12. SIMVASTATIN [Concomitant]

REACTIONS (5)
  - Fatigue [None]
  - Aspartate aminotransferase increased [None]
  - Alanine aminotransferase increased [None]
  - Blood creatine phosphokinase increased [None]
  - Myalgia [None]
